FAERS Safety Report 5216097-5 (Version None)
Quarter: 2007Q1

REPORT INFORMATION
  Report Type: 
  Country: None (occurrence: None)
  Receive Date: 20061122
  Receipt Date: 20060111
  Transmission Date: 20070707
  Serious: Yes (Hospitalization, Other)
  Sender: FDA-Public Use
  Company Number: 2006006742

PATIENT
  Age: 40 Year
  Sex: Female

DRUGS (9)
  1. LIPITOR [Suspect]
     Indication: BLOOD CHOLESTEROL INCREASED
     Dosage: 10 MG (10 MG, 1 IN 1 D)
  2. NEXIUM [Concomitant]
  3. REGLAN [Concomitant]
  4. ULTRASE (PANCRELIPASE) [Concomitant]
  5. CALCIUM (CALCIUM) [Concomitant]
  6. MULTIVITAMIN [Concomitant]
  7. NEURONTIN [Concomitant]
  8. MORPHINE SULFATE [Concomitant]
  9. SKELAXIN [Concomitant]

REACTIONS (2)
  - BLOOD CHOLESTEROL INCREASED [None]
  - PNEUMONIA [None]
